FAERS Safety Report 23053485 (Version 1)
Quarter: 2023Q4

REPORT INFORMATION
  Report Type: Report from Study
  Country: IT (occurrence: IT)
  Receive Date: 20231011
  Receipt Date: 20231011
  Transmission Date: 20240110
  Serious: Yes (Other)
  Sender: FDA-Public Use
  Company Number: None

PATIENT
  Age: 57 Year
  Sex: Male
  Weight: 80 kg

DRUGS (5)
  1. OXALIPLATIN [Suspect]
     Active Substance: OXALIPLATIN
     Indication: Chemotherapy
     Dosage: FREQUENCY OF ADMINISTRATION: CYCLIC ROUTE OF ADMINISTRATION: INTRAVENOUS
     Dates: start: 20230904, end: 20230904
  2. ONDANSETRON [Concomitant]
     Active Substance: ONDANSETRON
     Indication: Chemotherapy side effect prophylaxis
     Dosage: ROUTE OF ADMINISTRATION: INTRAVENOUS
     Dates: start: 20230904, end: 20230904
  3. TRIMETON [Concomitant]
     Active Substance: CHLORPHENIRAMINE MALEATE
     Indication: Chemotherapy side effect prophylaxis
     Dosage: ROUTE OF ADMINISTRATION: INTRAVENOUS
     Dates: start: 20230904, end: 20230904
  4. LEVOLEUCOVORIN CALCIUM [Concomitant]
     Active Substance: LEVOLEUCOVORIN CALCIUM
     Indication: Chemotherapy
     Dosage: ROUTE OF?ADMINISTRATION: INTRAVENOUS
     Dates: start: 20230904, end: 20230904
  5. DEXAMETHASONE [Concomitant]
     Active Substance: DEXAMETHASONE
     Indication: Chemotherapy side effect prophylaxis
     Dosage: ROUTE OF ADMINISTRATION: INTRAVENOUS
     Dates: start: 20230904, end: 20230904

REACTIONS (6)
  - Hyperhidrosis [Recovering/Resolving]
  - Feeling hot [Recovering/Resolving]
  - Hypotension [Recovering/Resolving]
  - Erythema [Recovering/Resolving]
  - Malaise [Recovering/Resolving]
  - Bradycardia [Recovering/Resolving]

NARRATIVE: CASE EVENT DATE: 20230904
